FAERS Safety Report 9372260 (Version 1)
Quarter: 2013Q2

REPORT INFORMATION
  Report Type: Report from Study
  Country: US (occurrence: US)
  Receive Date: 20130627
  Receipt Date: 20130627
  Transmission Date: 20140414
  Serious: Yes (Other)
  Sender: FDA-Public Use
  Company Number: US-MYLANLABS-2012S1018572

PATIENT
  Age: 85 Year
  Sex: Female

DRUGS (7)
  1. CLOZAPINE TABLETS [Suspect]
     Indication: SCHIZOPHRENIA, PARANOID TYPE
     Dosage: 75MG QAM, 50MG QPM
     Route: 048
     Dates: start: 200904, end: 201209
  2. CLOZAPINE TABLETS [Suspect]
     Indication: SCHIZOPHRENIA, PARANOID TYPE
     Dosage: 75MG QAM, 50MG QPM
     Route: 048
     Dates: start: 200904, end: 201209
  3. CLOZAPINE TABLETS [Suspect]
     Indication: SCHIZOPHRENIA, PARANOID TYPE
     Route: 048
     Dates: start: 20120913
  4. CLOZAPINE TABLETS [Suspect]
     Indication: SCHIZOPHRENIA, PARANOID TYPE
     Route: 048
     Dates: start: 20120913
  5. HALDOL [Concomitant]
     Route: 030
  6. HALDOL [Concomitant]
  7. ABILIFY [Concomitant]

REACTIONS (1)
  - Granulocytopenia [Recovered/Resolved]
